FAERS Safety Report 8157341-4 (Version None)
Quarter: 2012Q1

REPORT INFORMATION
  Report Type: 
  Country: None (occurrence: None)
  Receive Date: 20120222
  Receipt Date: 20120120
  Transmission Date: 20120608
  Serious: Yes (Hospitalization)
  Sender: FDA-Public Use
  Company Number: AT-ROCHE-769309

PATIENT
  Sex: Female
  Weight: 50 kg

DRUGS (7)
  1. VINORELBINE TARTRATE [Concomitant]
     Indication: NON-SMALL CELL LUNG CANCER
     Dosage: FREQUENCY: D1, D8, D22
     Route: 042
     Dates: start: 20071101, end: 20081114
  2. AVASTIN [Suspect]
     Route: 042
  3. GEMCITABINE [Concomitant]
     Indication: NON-SMALL CELL LUNG CANCER
     Dosage: FREQUENCY: D1, D8, D22
     Route: 042
     Dates: start: 20071101, end: 20081114
  4. NORVASC [Concomitant]
     Indication: HYPERTENSION
     Route: 048
  5. AVASTIN [Suspect]
     Indication: NON-SMALL CELL LUNG CANCER
     Route: 042
     Dates: start: 20071101, end: 20081224
  6. RAMIPRIL [Concomitant]
     Indication: HYPERTENSION
     Route: 048
  7. METOPROLOL TARTRATE [Concomitant]
     Indication: HYPERTENSION
     Route: 048

REACTIONS (1)
  - PNEUMOTHORAX [None]
